FAERS Safety Report 12646208 (Version 1)
Quarter: 2016Q3

REPORT INFORMATION
  Report Type: Report from Study
  Country: US (occurrence: US)
  Receive Date: 20160811
  Receipt Date: 20160811
  Transmission Date: 20161109
  Serious: Yes (Other)
  Sender: FDA-Public Use
  Company Number: US-UCBSA-2016026433

PATIENT
  Sex: Female

DRUGS (2)
  1. ZYPREXA [Concomitant]
     Active Substance: OLANZAPINE
     Indication: PRODUCT USED FOR UNKNOWN INDICATION
  2. LEVETIRACETAM. [Suspect]
     Active Substance: LEVETIRACETAM
     Indication: SEIZURE
     Dosage: UNK

REACTIONS (17)
  - Nausea [Unknown]
  - Movement disorder [Unknown]
  - Balance disorder [Unknown]
  - Jarisch-Herxheimer reaction [Unknown]
  - Hypoaesthesia [Unknown]
  - Blindness [Unknown]
  - Myasthenia gravis [Unknown]
  - Dizziness [Unknown]
  - Eyelid ptosis [Unknown]
  - Chills [Unknown]
  - Amnesia [Unknown]
  - Gait disturbance [Unknown]
  - Back pain [Unknown]
  - Flatulence [Unknown]
  - Migraine [Unknown]
  - Salivary hypersecretion [Unknown]
  - Pain in extremity [Unknown]
